FAERS Safety Report 8549838-X (Version None)
Quarter: 2012Q3

REPORT INFORMATION
  Report Type: 
  Country: None (occurrence: None)
  Receive Date: 20120730
  Receipt Date: 20120726
  Transmission Date: 20120928
  Serious: Yes (Life-Threatening, Hospitalization)
  Sender: FDA-Public Use
  Company Number: RO-ASTRAZENECA-2012SE53139

PATIENT
  Age: 48 Year
  Sex: Female
  Weight: 70 kg

DRUGS (3)
  1. TROMBOSTOP [Interacting]
     Dosage: THE DOSE WAS REDUCED TO 1/2 TABLET SINCE 20-JUL-2012.
     Route: 048
     Dates: start: 20120720
  2. FASLODEX [Suspect]
     Indication: BREAST CANCER STAGE IV
     Route: 030
     Dates: start: 20120501, end: 20120723
  3. TROMBOSTOP [Interacting]
     Route: 048
     Dates: start: 20120601

REACTIONS (4)
  - DRUG INTERACTION [None]
  - PETECHIAE [None]
  - MUSCLE HAEMORRHAGE [None]
  - CONTUSION [None]
